FAERS Safety Report 16048089 (Version 9)
Quarter: 2022Q1

REPORT INFORMATION
  Report Type: Spontaneous
  Country: US (occurrence: US)
  Receive Date: 20190307
  Receipt Date: 20220328
  Transmission Date: 20220423
  Serious: Yes (Other)
  Sender: FDA-Public Use
  Company Number: US-GLAXOSMITHKLINE-US2019GSK040683

PATIENT
  Sex: Male
  Weight: 98.413 kg

DRUGS (23)
  1. PREVACID 24 HR [Suspect]
     Active Substance: LANSOPRAZOLE
     Indication: Gastrooesophageal reflux disease
     Dosage: 15 MG, QD
     Route: 048
  2. PREVACID 24 HR [Suspect]
     Active Substance: LANSOPRAZOLE
     Dosage: UNK
     Route: 048
     Dates: start: 2009, end: 2018
  3. PREVACID 24 HR [Suspect]
     Active Substance: LANSOPRAZOLE
     Dosage: 15 MG, QD
     Route: 048
     Dates: start: 20090518, end: 20181231
  4. PREVACID [Suspect]
     Active Substance: LANSOPRAZOLE
     Indication: Gastrooesophageal reflux disease
     Dosage: 20 MG, QD
     Route: 048
     Dates: start: 1995, end: 2018
  5. PREVACID [Suspect]
     Active Substance: LANSOPRAZOLE
     Dosage: 40 MG, QD
     Route: 065
  6. PREVACID [Suspect]
     Active Substance: LANSOPRAZOLE
     Dosage: 40 MG, QD
     Route: 065
     Dates: start: 19950510, end: 20181231
  7. NEXIUM [Suspect]
     Active Substance: ESOMEPRAZOLE MAGNESIUM
     Indication: Gastrooesophageal reflux disease
     Dosage: 20 MG, QD
     Route: 048
     Dates: start: 2001, end: 2018
  8. NEXIUM [Suspect]
     Active Substance: ESOMEPRAZOLE MAGNESIUM
     Dosage: 40 MG, QD
     Route: 065
     Dates: start: 20010220, end: 20181231
  9. NEXIUM 24HR [Suspect]
     Active Substance: ESOMEPRAZOLE MAGNESIUM
     Indication: Gastrooesophageal reflux disease
     Dosage: UNK
     Route: 048
     Dates: start: 2014, end: 2018
  10. NEXIUM 24HR [Suspect]
     Active Substance: ESOMEPRAZOLE MAGNESIUM
     Dosage: 20 MG, QD
     Route: 065
     Dates: start: 20140328, end: 20181231
  11. LANSOPRAZOLE [Suspect]
     Active Substance: LANSOPRAZOLE
     Indication: Product used for unknown indication
     Dosage: UNK
     Route: 065
  12. ESOMEPRAZOLE MAGNESIUM [Suspect]
     Active Substance: ESOMEPRAZOLE MAGNESIUM
     Indication: Product used for unknown indication
     Dosage: UNK
     Route: 065
  13. OMEPRAZOLE [Suspect]
     Active Substance: OMEPRAZOLE
     Indication: Gastrooesophageal reflux disease
     Dosage: 20 MG, QD
     Route: 065
  14. OMEPRAZOLE [Suspect]
     Active Substance: OMEPRAZOLE
     Indication: Gastrooesophageal reflux disease
     Dosage: 40 MG, QD
     Route: 065
     Dates: start: 2013
  15. OMEPRAZOLE [Suspect]
     Active Substance: OMEPRAZOLE
     Dosage: UNK
     Route: 048
     Dates: start: 2013, end: 2018
  16. PANTOPRAZOLE SODIUM [Suspect]
     Active Substance: PANTOPRAZOLE SODIUM
     Indication: Product used for unknown indication
     Dosage: UNK
     Route: 065
  17. PRILOSEC [Suspect]
     Active Substance: OMEPRAZOLE MAGNESIUM
     Indication: Gastrooesophageal reflux disease
     Dosage: 20 MG, QD
     Route: 048
     Dates: start: 1995, end: 2018
  18. PRILOSEC [Suspect]
     Active Substance: OMEPRAZOLE MAGNESIUM
     Dosage: 40 MG, QD
     Route: 065
     Dates: start: 19950101, end: 20181231
  19. PRILOSEC [Suspect]
     Active Substance: OMEPRAZOLE MAGNESIUM
     Indication: Gastrooesophageal reflux disease
     Dosage: UNK
     Route: 065
     Dates: start: 2003, end: 2018
  20. PRILOSEC [Suspect]
     Active Substance: OMEPRAZOLE MAGNESIUM
     Dosage: 20 MG, QD
     Route: 065
     Dates: start: 20030620, end: 20181231
  21. PRILOSEC [Suspect]
     Active Substance: OMEPRAZOLE MAGNESIUM
     Indication: Product used for unknown indication
     Dosage: 40 MG
     Route: 065
     Dates: start: 20191220
  22. OMEPRAZOLE [Suspect]
     Active Substance: OMEPRAZOLE
     Indication: Product used for unknown indication
     Dosage: 40 MG, QD
     Route: 048
  23. OMEPRAZOLE [Suspect]
     Active Substance: OMEPRAZOLE
     Dosage: 20 MG
     Route: 065
     Dates: start: 20121219, end: 20130515

REACTIONS (5)
  - Chronic kidney disease [Not Recovered/Not Resolved]
  - Renal injury [Unknown]
  - Nephrolithiasis [Unknown]
  - Acute kidney injury [Unknown]
  - Proteinuria [Unknown]

NARRATIVE: CASE EVENT DATE: 20180101
